FAERS Safety Report 16005460 (Version 1)
Quarter: 2019Q1

REPORT INFORMATION
  Report Type: Spontaneous
  Country: ES (occurrence: ES)
  Receive Date: 20190226
  Receipt Date: 20190226
  Transmission Date: 20190418
  Serious: Yes (Death, Other)
  Sender: FDA-Public Use
  Company Number: ES-SA-2019SA050974

PATIENT
  Age: 78 Year
  Sex: Female

DRUGS (9)
  1. CAPECITABINA ZENTIVA [Suspect]
     Active Substance: CAPECITABINE
     Indication: GASTRIC CANCER
     Dates: start: 20190124
  2. OXALIPLATINO WINTHROP [Suspect]
     Active Substance: OXALIPLATIN
     Indication: GASTRIC CANCER
     Dates: start: 20190124
  3. SEGURIL [Concomitant]
     Active Substance: FUROSEMIDE
  4. ELIQUIS [Concomitant]
     Active Substance: APIXABAN
  5. BISOPROLOL [Concomitant]
     Active Substance: BISOPROLOL
  6. TRASTUZUMAB. [Suspect]
     Active Substance: TRASTUZUMAB
     Indication: GASTRIC CANCER
     Route: 042
     Dates: start: 20190124, end: 20190124
  7. ATORVASTATINA [ATORVASTATIN] [Concomitant]
     Active Substance: ATORVASTATIN
  8. RAMIPRIL. [Concomitant]
     Active Substance: RAMIPRIL
  9. PANTOPRAZOL [PANTOPRAZOLE] [Concomitant]

REACTIONS (6)
  - Nausea [Fatal]
  - Acute kidney injury [Fatal]
  - Ileus paralytic [None]
  - Hypothermia [Fatal]
  - Asthenia [Fatal]
  - Diarrhoea [Fatal]

NARRATIVE: CASE EVENT DATE: 20190124
